FAERS Safety Report 15010276 (Version 2)
Quarter: 2018Q3

REPORT INFORMATION
  Report Type: Spontaneous
  Country: US (occurrence: US)
  Receive Date: 20180614
  Receipt Date: 20180705
  Transmission Date: 20181010
  Serious: Yes (Hospitalization, Other)
  Sender: FDA-Public Use
  Company Number: US-AMGEN-USASP2018077984

PATIENT
  Age: 77 Year
  Sex: Female

DRUGS (1)
  1. PROLIA [Suspect]
     Active Substance: DENOSUMAB
     Indication: OSTEOPOROSIS POSTMENOPAUSAL
     Dosage: 60 MG, Q6MO
     Route: 065
     Dates: start: 2013

REACTIONS (11)
  - Tooth disorder [Unknown]
  - Bronchitis [Unknown]
  - Ankle fracture [Recovered/Resolved]
  - Carpal tunnel syndrome [Unknown]
  - Multiple fractures [Unknown]
  - Pain in extremity [Unknown]
  - Malaise [Unknown]
  - Fall [Unknown]
  - Device breakage [Unknown]
  - Rotator cuff syndrome [Unknown]
  - Nasopharyngitis [Unknown]

NARRATIVE: CASE EVENT DATE: 20151206
